FAERS Safety Report 15530229 (Version 2)
Quarter: 2018Q4

REPORT INFORMATION
  Report Type: Report from Study
  Country: FR (occurrence: FR)
  Receive Date: 20181018
  Receipt Date: 20181022
  Transmission Date: 20190205
  Serious: Yes (Death)
  Sender: FDA-Public Use
  Company Number: FR-PFIZER INC-2018420589

PATIENT
  Age: 57 Year
  Sex: Male
  Weight: 82 kg

DRUGS (3)
  1. MYLOTARG [Suspect]
     Active Substance: GEMTUZUMAB OZOGAMICIN
     Indication: ACUTE MYELOID LEUKAEMIA
     Dosage: 5 MG, DAILY AT DAY1, DAY4
     Route: 042
     Dates: start: 20160711, end: 20160714
  2. DAUNORUBICINE DCI [Concomitant]
     Active Substance: DAUNORUBICIN HYDROCHLORIDE
     Indication: ACUTE MYELOID LEUKAEMIA
     Dosage: 120 MG, DAILY DAY1 TO DAY3
     Route: 042
     Dates: start: 20160711
  3. CYTARABINE ACCORD [Concomitant]
     Active Substance: CYTARABINE
     Indication: ACUTE MYELOID LEUKAEMIA
     Dosage: 400 MG, DAILY FROM DAY1 TO DAY 7
     Route: 042
     Dates: start: 20160711

REACTIONS (3)
  - Platelet count decreased [Unknown]
  - Cardio-respiratory arrest [Fatal]
  - Blood creatinine increased [Unknown]

NARRATIVE: CASE EVENT DATE: 20160711
